FAERS Safety Report 7775361-6 (Version None)
Quarter: 2011Q3

REPORT INFORMATION
  Report Type: 
  Country: None (occurrence: None)
  Receive Date: 20110923
  Receipt Date: 20110915
  Transmission Date: 20111222
  Serious: Yes (Other)
  Sender: FDA-Public Use
  Company Number: PHHY2011BR82495

PATIENT
  Age: 66 Year
  Sex: Male

DRUGS (11)
  1. MINOXIDIL [Concomitant]
  2. CALCIUM CARBONATE [Concomitant]
     Dosage: 2 DF / DAY
  3. ROSUVASTATIN [Concomitant]
     Dosage: 1 DF /DAY
  4. GLIMEPIRIDE [Concomitant]
     Dosage: 2 MG/ DAY
  5. ASPIRIN [Concomitant]
     Dosage: 1 DF / DAY
  6. AMLODIPINE [Concomitant]
  7. GALVUS [Suspect]
     Dosage: 1 DF / DAY
  8. RAMIPRIL [Concomitant]
     Dosage: 10 MG / DAY
  9. FUROSEMIDE [Concomitant]
     Dosage: 40 MG / DAY
  10. METOPROLOL SUCCINATE [Concomitant]
  11. DIOVAN [Suspect]
     Dosage: 1 DF/ DAY

REACTIONS (5)
  - PROTEINURIA [None]
  - RENAL IMPAIRMENT [None]
  - BLOOD PRESSURE INCREASED [None]
  - LEFT VENTRICULAR HYPERTROPHY [None]
  - LEFT VENTRICULAR FAILURE [None]
